FAERS Safety Report 8099901-5 (Version None)
Quarter: 2012Q1

REPORT INFORMATION
  Report Type: 
  Country: None (occurrence: None)
  Receive Date: 20120131
  Receipt Date: 20120120
  Transmission Date: 20120608
  Serious: No
  Sender: FDA-Public Use
  Company Number: JP-JNJFOC-20111003936

PATIENT
  Sex: Female

DRUGS (1)
  1. FENTANYL-100 [Suspect]
     Indication: CANCER PAIN
     Route: 062
     Dates: start: 20110930, end: 20111005

REACTIONS (3)
  - PRURITUS [None]
  - DERMATITIS CONTACT [None]
  - WRONG TECHNIQUE IN DRUG USAGE PROCESS [None]
